FAERS Safety Report 17547191 (Version 2)
Quarter: 2020Q1

REPORT INFORMATION
  Report Type: Spontaneous
  Country: DK (occurrence: DK)
  Receive Date: 20200316
  Receipt Date: 20200316
  Transmission Date: 20200409
  Serious: Yes (Hospitalization)
  Sender: FDA-Public Use
  Company Number: DK-JNJFOC-20200306884

PATIENT
  Age: 32 Year
  Sex: Male
  Weight: 85 kg

DRUGS (1)
  1. STELARA [Suspect]
     Active Substance: USTEKINUMAB
     Indication: PSORIASIS
     Route: 058
     Dates: start: 2017, end: 20180823

REACTIONS (2)
  - Cardiac arrest [Recovered/Resolved]
  - Ventricular fibrillation [Recovered/Resolved]

NARRATIVE: CASE EVENT DATE: 20180825
